FAERS Safety Report 5806936-9 (Version None)
Quarter: 2008Q3

REPORT INFORMATION
  Report Type: 
  Country: None (occurrence: None)
  Receive Date: 20080711
  Receipt Date: 20080707
  Transmission Date: 20090109
  Serious: Yes (Other)
  Sender: FDA-Public Use
  Company Number: JP-JNJFOC-20080605397

PATIENT
  Sex: Male

DRUGS (11)
  1. FINIBAX [Suspect]
     Indication: URINARY TRACT INFECTION
     Route: 041
  2. FINIBAX [Suspect]
     Indication: SEPSIS
     Route: 041
  3. ANCARON [Concomitant]
     Route: 048
  4. PANTOSIN [Concomitant]
     Route: 048
  5. FLENIED [Concomitant]
     Route: 048
  6. LASIX [Concomitant]
     Route: 048
  7. ALDACTONE [Concomitant]
     Route: 048
  8. ALOSITOL [Concomitant]
     Route: 048
  9. LAXOBERON [Concomitant]
     Route: 048
  10. DOMPERIDONE [Concomitant]
     Route: 048
  11. MUCOSTA [Concomitant]
     Route: 048

REACTIONS (3)
  - ALANINE AMINOTRANSFERASE INCREASED [None]
  - ASPARTATE AMINOTRANSFERASE INCREASED [None]
  - WHITE BLOOD CELL COUNT DECREASED [None]
